FAERS Safety Report 21347495 (Version 3)
Quarter: 2022Q4

REPORT INFORMATION
  Report Type: Report from Study
  Country: US (occurrence: US)
  Receive Date: 20220919
  Receipt Date: 20221019
  Transmission Date: 20230112
  Serious: Yes (Hospitalization, Disabling, Other)
  Sender: FDA-Public Use
  Company Number: US-BIOVITRUM-2022US10585

PATIENT
  Age: 46 Year
  Sex: Female
  Weight: 97 kg

DRUGS (7)
  1. ANAKINRA [Suspect]
     Active Substance: ANAKINRA
     Indication: Chronic infantile neurological cutaneous and articular syndrome
     Dosage: 6MG/KG/DAY
     Dates: start: 200503, end: 202207
  2. ACETAZOLAMIDE [Concomitant]
     Active Substance: ACETAZOLAMIDE
     Indication: Product used for unknown indication
     Dates: start: 20060401
  3. MELATONIN [Concomitant]
     Active Substance: MELATONIN
     Indication: Product used for unknown indication
  4. MEMANTINE [Concomitant]
     Active Substance: MEMANTINE
     Indication: Product used for unknown indication
  5. ROSUVASTATIN [Concomitant]
     Active Substance: ROSUVASTATIN
     Indication: Product used for unknown indication
  6. NORTRIPTYLINE [Concomitant]
     Active Substance: NORTRIPTYLINE
     Indication: Product used for unknown indication
  7. CALCIUM CARBONATE [Concomitant]
     Active Substance: CALCIUM CARBONATE
     Indication: Product used for unknown indication

REACTIONS (7)
  - Amyloidosis [Unknown]
  - Oedema [Unknown]
  - Proteinuria [Unknown]
  - Gastrointestinal wall thickening [Unknown]
  - Fungal infection [Unknown]
  - Injection site reaction [Not Recovered/Not Resolved]
  - Injection site nodule [Unknown]

NARRATIVE: CASE EVENT DATE: 20201001
